FAERS Safety Report 10228032 (Version 1)
Quarter: 2014Q2

REPORT INFORMATION
  Report Type: Spontaneous
  Country: BR (occurrence: BR)
  Receive Date: 20140610
  Receipt Date: 20140610
  Transmission Date: 20141212
  Serious: Yes (Hospitalization)
  Sender: FDA-Public Use
  Company Number: BR-PFIZER INC-2014153047

PATIENT
  Age: 57 Year
  Sex: Male
  Weight: 96 kg

DRUGS (3)
  1. CARDURAN XL [Suspect]
     Indication: MICTURITION DISORDER
     Dosage: UNK (4 MG STRENGTH)
     Route: 048
     Dates: start: 2006
  2. CARDURAN XL [Suspect]
     Dosage: UNK
     Dates: start: 201405
  3. DIOVAN [Concomitant]
     Indication: HYPERTENSION
     Dosage: UNK
     Dates: start: 2001

REACTIONS (3)
  - Prostatic disorder [Unknown]
  - Dysuria [Unknown]
  - Inflammation [Unknown]
